FAERS Safety Report 24087436 (Version 2)
Quarter: 2024Q3

REPORT INFORMATION
  Report Type: Report from Study
  Country: US (occurrence: US)
  Receive Date: 20240714
  Receipt Date: 20240716
  Transmission Date: 20241016
  Serious: No
  Sender: SANOFI AVENTIS
  Company Number: US-SANOFI-02127003

PATIENT
  Age: 39 Year
  Sex: Male

DRUGS (5)
  1. LANTUS SOLOSTAR [Suspect]
     Active Substance: INSULIN GLARGINE
     Indication: Type 2 diabetes mellitus
     Dosage: 30 IU
  2. LANTUS SOLOSTAR [Suspect]
     Active Substance: INSULIN GLARGINE
     Dosage: 38 IU
     Dates: start: 2024, end: 2024
  3. LANTUS SOLOSTAR [Suspect]
     Active Substance: INSULIN GLARGINE
     Dosage: 40 IU
     Dates: start: 2024, end: 2024
  4. LANTUS SOLOSTAR [Suspect]
     Active Substance: INSULIN GLARGINE
     Dosage: 60 UNITS DAILY
     Dates: start: 2024, end: 2024
  5. LANTUS SOLOSTAR [Suspect]
     Active Substance: INSULIN GLARGINE
     Dosage: 35 IU, QD
     Dates: start: 2024

REACTIONS (1)
  - Blood glucose increased [Recovering/Resolving]

NARRATIVE: CASE EVENT DATE: 20240101
